FAERS Safety Report 25727190 (Version 1)
Quarter: 2025Q3

REPORT INFORMATION
  Report Type: Spontaneous
  Country: CA (occurrence: CA)
  Receive Date: 20250826
  Receipt Date: 20250826
  Transmission Date: 20251021
  Serious: Yes (Other)
  Sender: ROCHE
  Company Number: CA-ROCHE-10000338008

PATIENT
  Sex: Female

DRUGS (5)
  1. RITUXIMAB [Suspect]
     Active Substance: RITUXIMAB
     Indication: Product used for unknown indication
     Route: 065
  2. OCRELIZUMAB [Concomitant]
     Active Substance: OCRELIZUMAB
     Route: 042
  3. SODIUM CHLORIDE [Concomitant]
     Active Substance: SODIUM CHLORIDE
  4. CETIRIZINE [Concomitant]
     Active Substance: CETIRIZINE HYDROCHLORIDE
     Route: 048
  5. SYNTHROID [Concomitant]
     Active Substance: LEVOTHYROXINE SODIUM

REACTIONS (11)
  - Drug hypersensitivity [Unknown]
  - Muscle spasticity [Unknown]
  - Gait disturbance [Unknown]
  - Fatigue [Unknown]
  - Brain fog [Unknown]
  - Pain [Unknown]
  - Muscle spasms [Unknown]
  - Neuralgia [Unknown]
  - Ill-defined disorder [Unknown]
  - Relapsing-remitting multiple sclerosis [Unknown]
  - Multiple sclerosis [Unknown]
